FAERS Safety Report 4621157-3 (Version None)
Quarter: 2005Q1

REPORT INFORMATION
  Report Type: 
  Country: None (occurrence: None)
  Receive Date: 20050328
  Receipt Date: 20050318
  Transmission Date: 20050727
  Serious: Yes (Hospitalization, Disabling)
  Sender: FDA-Public Use
  Company Number: 2005PK00482

PATIENT
  Age: 69 Year
  Sex: Female

DRUGS (7)
  1. IRESSA [Suspect]
     Indication: NON-SMALL CELL LUNG CANCER
     Dosage: 250 MG DAILY
     Dates: start: 20040805
  2. ASPIRIN [Concomitant]
  3. CONCOR [Concomitant]
  4. VIANI [Concomitant]
  5. LENDORM [Concomitant]
  6. MAGNESIUM SANDOZ [Concomitant]
  7. FRAXIPARIN [Concomitant]

REACTIONS (9)
  - CARDIAC FAILURE [None]
  - CORONARY ARTERY ATHEROSCLEROSIS [None]
  - DYSPNOEA [None]
  - ECHOCARDIOGRAM ABNORMAL [None]
  - HEPATOSPLENOMEGALY [None]
  - PLEURAL EFFUSION [None]
  - PULMONARY HYPERTENSION [None]
  - SPINAL OSTEOARTHRITIS [None]
  - SYNCOPE [None]
